FAERS Safety Report 5824202-2 (Version None)
Quarter: 2008Q3

REPORT INFORMATION
  Report Type: 
  Country: None (occurrence: None)
  Receive Date: 20080728
  Receipt Date: 20080715
  Transmission Date: 20090109
  Serious: Yes (Other)
  Sender: FDA-Public Use
  Company Number: US-BAYER-200828280NA

PATIENT
  Age: 80 Year
  Sex: Female

DRUGS (1)
  1. CIPRO [Suspect]
     Indication: MUSCULOSKELETAL PAIN
     Dosage: TOTAL DAILY DOSE: 1000 MG  UNIT DOSE: 500 MG

REACTIONS (2)
  - ARTHRALGIA [None]
  - LIGAMENT RUPTURE [None]
